FAERS Safety Report 20130902 (Version 1)
Quarter: 2021Q4

REPORT INFORMATION
  Report Type: Spontaneous
  Country: SE (occurrence: SE)
  Receive Date: 20211130
  Receipt Date: 20211130
  Transmission Date: 20220303
  Serious: Yes (Other)
  Sender: FDA-Public Use
  Company Number: SE-PHOTOCURE ASA-PHCSE2021000007

PATIENT

DRUGS (1)
  1. HEXAMINOLEVULINATE HYDROCHLORIDE [Suspect]
     Active Substance: HEXAMINOLEVULINATE HYDROCHLORIDE
     Indication: Turbinectomy
     Dosage: UNK
     Dates: start: 20211104

REACTIONS (1)
  - Hypertension [Recovered/Resolved]

NARRATIVE: CASE EVENT DATE: 20211104
